FAERS Safety Report 6160254-0 (Version None)
Quarter: 2009Q2

REPORT INFORMATION
  Report Type: 
  Country: None (occurrence: None)
  Receive Date: 20090420
  Receipt Date: 20090406
  Transmission Date: 20091009
  Serious: Yes (Life-Threatening, Hospitalization)
  Sender: FDA-Public Use
  Company Number: B0570212A

PATIENT
  Age: 17 Year
  Sex: Male

DRUGS (2)
  1. ALBENDAZOLE [Suspect]
     Indication: DRUG USE FOR UNKNOWN INDICATION
     Route: 065
     Dates: start: 20080909
  2. MECTIZAN [Suspect]
     Indication: DRUG USE FOR UNKNOWN INDICATION
     Route: 065
     Dates: start: 20080909

REACTIONS (7)
  - BLOOD PRESSURE [None]
  - CONDITION AGGRAVATED [None]
  - GENERALISED OEDEMA [None]
  - MALARIA [None]
  - PALPITATIONS [None]
  - PITTING OEDEMA [None]
  - RENAL FAILURE ACUTE [None]
